FAERS Safety Report 12156516 (Version 1)
Quarter: 2016Q1

REPORT INFORMATION
  Report Type: Spontaneous
  Country: ZA (occurrence: ZA)
  Receive Date: 20160307
  Receipt Date: 20160307
  Transmission Date: 20160526
  Serious: Yes (Hospitalization, Other)
  Sender: FDA-Public Use
  Company Number: ZA-MYLANLABS-2016M1009281

PATIENT

DRUGS (1)
  1. EFAVIRENZ/LAMIVUDINE/TENOFOVIR DISOPROXIL FUMARATE TABLETS [Suspect]
     Active Substance: EFAVIRENZ\LAMIVUDINE\TENOFOVIR
     Dosage: UNK
     Route: 048
     Dates: start: 20070107, end: 20140430

REACTIONS (7)
  - Haemoglobin decreased [Unknown]
  - Myalgia [Unknown]
  - Dizziness [Unknown]
  - CD4 lymphocytes abnormal [Unknown]
  - Weight decreased [Unknown]
  - Headache [Unknown]
  - Blood creatine phosphokinase increased [Unknown]
